FAERS Safety Report 7390061-2 (Version None)
Quarter: 2011Q2

REPORT INFORMATION
  Report Type: 
  Country: None (occurrence: None)
  Receive Date: 20110401
  Receipt Date: 20110318
  Transmission Date: 20111010
  Serious: Yes (Hospitalization, Other)
  Sender: FDA-Public Use
  Company Number: US-BAYER-201036491NA

PATIENT
  Sex: Female
  Weight: 67.574 kg

DRUGS (5)
  1. TOPAMAX [Concomitant]
     Dosage: 200 MG, UNK
     Route: 048
  2. AMBIEN [Concomitant]
     Dosage: 10 MG, PRN
     Route: 048
  3. ELAVIL [Concomitant]
     Dosage: 10 MG, UNK
     Route: 048
  4. YASMIN [Suspect]
     Indication: OVARIAN CYST
     Dates: start: 20020101, end: 20090301
  5. OCELLA [Suspect]
     Indication: OVARIAN CYST
     Dates: start: 20090301, end: 20091001

REACTIONS (8)
  - ABDOMINAL PAIN UPPER [None]
  - PAIN [None]
  - VOMITING [None]
  - CHOLECYSTITIS [None]
  - DIARRHOEA [None]
  - DYSPEPSIA [None]
  - GALLBLADDER DISORDER [None]
  - CHOLELITHIASIS [None]
